FAERS Safety Report 20333470 (Version 3)
Quarter: 2022Q2

REPORT INFORMATION
  Report Type: Report from Study
  Country: US (occurrence: US)
  Receive Date: 20220113
  Receipt Date: 20220409
  Transmission Date: 20220721
  Serious: No
  Sender: FDA-Public Use
  Company Number: US-NOVARTISTESTPH-NVSC2022US006771

PATIENT
  Sex: Male

DRUGS (1)
  1. COSENTYX [Suspect]
     Active Substance: SECUKINUMAB
     Indication: Psoriatic arthropathy
     Dosage: EVERY WEEK X 5 WEEKS THEN EVERY 4
     Route: 058
     Dates: start: 20211118

REACTIONS (3)
  - Blood pressure increased [Unknown]
  - Flushing [Unknown]
  - Hyperhidrosis [Unknown]
